FAERS Safety Report 10973795 (Version 1)
Quarter: 2015Q1

REPORT INFORMATION
  Report Type: Spontaneous
  Country: CA (occurrence: None)
  Receive Date: 20150331
  Receipt Date: 20150331
  Transmission Date: 20150721
  Serious: Yes (Other)
  Sender: FDA-Public Use
  Company Number: None

PATIENT
  Age: 78 Year
  Sex: Female
  Weight: 58.97 kg

DRUGS (2)
  1. CHOLESTEROL MEDICATION [Concomitant]
     Active Substance: UNSPECIFIED INGREDIENT
  2. LYRICA [Suspect]
     Active Substance: PREGABALIN
     Indication: NEURALGIA
     Dosage: 10 DAYS, 2 CAPSULES PER DAY

REACTIONS (4)
  - Oral infection [None]
  - Rash generalised [None]
  - Pharyngitis [None]
  - Vision blurred [None]

NARRATIVE: CASE EVENT DATE: 20150324
